FAERS Safety Report 4899419-4 (Version None)
Quarter: 2006Q1

REPORT INFORMATION
  Report Type: 
  Country: None (occurrence: None)
  Receive Date: 20060202
  Receipt Date: 20060123
  Transmission Date: 20060701
  Serious: Yes (Hospitalization)
  Sender: FDA-Public Use
  Company Number: FR-ABBOTT-06P-056-0323084-00

PATIENT
  Age: 79 Year
  Sex: Female

DRUGS (7)
  1. LIPANTHYL [Suspect]
     Indication: HYPERCHOLESTEROLAEMIA
     Route: 048
     Dates: start: 20000601, end: 20051125
  2. CANDESARTAN CILEXETIL [Suspect]
     Indication: ESSENTIAL HYPERTENSION
     Route: 048
     Dates: start: 20010601, end: 20041115
  3. TROXERUTIN [Suspect]
     Indication: VARICOSE VEIN
     Route: 048
     Dates: end: 20051129
  4. ACETYLSALICYLATE LYSINE [Suspect]
     Indication: DRUG USE FOR UNKNOWN INDICATION
     Route: 048
  5. GLICLAZIDE [Suspect]
     Indication: DIABETES MELLITUS
     Route: 048
     Dates: start: 20010601, end: 20041115
  6. ROSIGLITAZONE MALEATE [Concomitant]
     Indication: DRUG USE FOR UNKNOWN INDICATION
     Dates: start: 20041101
  7. PERINDOPRIL [Concomitant]
     Indication: DRUG USE FOR UNKNOWN INDICATION
     Dates: start: 20041101

REACTIONS (6)
  - DRUG ERUPTION [None]
  - ECZEMA [None]
  - LYMPHOEDEMA [None]
  - PRURIGO [None]
  - RASH VESICULAR [None]
  - SYSTEMIC INFLAMMATORY RESPONSE SYNDROME [None]
